FAERS Safety Report 21046499 (Version 3)
Quarter: 2022Q3

REPORT INFORMATION
  Report Type: Spontaneous
  Country: US (occurrence: US)
  Receive Date: 20220706
  Receipt Date: 20220708
  Transmission Date: 20221026
  Serious: No
  Sender: FDA-Public Use
  Company Number: US-ALLERGAN-2218761US

PATIENT
  Sex: Female

DRUGS (9)
  1. QULIPTA [Suspect]
     Active Substance: ATOGEPANT
     Indication: Migraine
     Dosage: 30 MG
     Dates: start: 20220222
  2. QULIPTA [Suspect]
     Active Substance: ATOGEPANT
     Dosage: 60 MG, QD
     Dates: start: 20220222
  3. QULIPTA [Suspect]
     Active Substance: ATOGEPANT
     Indication: Migraine
     Dosage: 10 MG, QD
     Dates: start: 202205
  4. UBRELVY [Suspect]
     Active Substance: UBROGEPANT
     Indication: Migraine
  5. COVID-19 VACCINE [Concomitant]
     Indication: COVID-19 immunisation
     Dosage: UNK, SINGLE
     Dates: start: 20211202, end: 20211202
  6. ATENOLOL [Concomitant]
     Active Substance: ATENOLOL
     Indication: Headache
     Dosage: ONCE DAILY
  7. TOPIRAMATE [Concomitant]
     Active Substance: TOPIRAMATE
  8. TRUDHESA [Concomitant]
     Active Substance: DIHYDROERGOTAMINE MESYLATE
  9. TOSYMRA [Concomitant]
     Active Substance: SUMATRIPTAN

REACTIONS (7)
  - Abdominal discomfort [Unknown]
  - Muscle spasms [Unknown]
  - Dyspepsia [Unknown]
  - COVID-19 [Unknown]
  - Migraine [Unknown]
  - Nausea [Unknown]
  - Drug ineffective [Unknown]
